FAERS Safety Report 25133871 (Version 6)
Quarter: 2025Q3

REPORT INFORMATION
  Report Type: Report from Study
  Country: PH (occurrence: PH)
  Receive Date: 20250328
  Receipt Date: 20250804
  Transmission Date: 20251021
  Serious: Yes (Other)
  Sender: TAKEDA
  Company Number: PH-TAKEDA-2025TUS031191

PATIENT
  Age: 69 Year
  Sex: Female

DRUGS (6)
  1. FRUQUINTINIB [Suspect]
     Active Substance: FRUQUINTINIB
     Indication: Colorectal cancer metastatic
  2. FRUQUINTINIB [Suspect]
     Active Substance: FRUQUINTINIB
     Indication: Metastases to lung
  3. FRUQUINTINIB [Suspect]
     Active Substance: FRUQUINTINIB
     Indication: Metastases to liver
  4. FRUQUINTINIB [Suspect]
     Active Substance: FRUQUINTINIB
  5. CAPECITABINE [Suspect]
     Active Substance: CAPECITABINE
     Indication: Metastases to lung
  6. CAPECITABINE [Suspect]
     Active Substance: CAPECITABINE
     Indication: Metastases to liver

REACTIONS (5)
  - Colorectal cancer metastatic [Unknown]
  - Pain [Recovered/Resolved]
  - Dysphonia [Recovered/Resolved]
  - Asthenia [Recovered/Resolved]
  - Stoma site pain [Recovered/Resolved]
